FAERS Safety Report 23395078 (Version 1)
Quarter: 2024Q1

REPORT INFORMATION
  Report Type: Spontaneous
  Country: FR (occurrence: FR)
  Receive Date: 20240112
  Receipt Date: 20240112
  Transmission Date: 20240410
  Serious: Yes (Other)
  Sender: FDA-Public Use
  Company Number: None

PATIENT
  Age: 24 Year
  Sex: Male

DRUGS (1)
  1. CLONAZEPAM [Suspect]
     Active Substance: CLONAZEPAM
     Dates: start: 20230722

REACTIONS (4)
  - Hyperleukocytosis [Unknown]
  - Rhabdomyolysis [Unknown]
  - Drug dependence [Not Recovered/Not Resolved]
  - Agitation [Recovered/Resolved]
